FAERS Safety Report 6669731-7 (Version None)
Quarter: 2010Q2

REPORT INFORMATION
  Report Type: 
  Country: None (occurrence: None)
  Receive Date: 20100402
  Receipt Date: 20100325
  Transmission Date: 20101027
  Serious: Yes (Hospitalization)
  Sender: FDA-Public Use
  Company Number: 020712735A

PATIENT
  Age: 72 Year
  Sex: Male

DRUGS (4)
  1. COLG. TOTAL ADVANCED HEALTH WHITENING GEL (CON'TH1O) [Suspect]
     Indication: DENTAL DISORDER PROPHYLAXIS
     Dosage: /ONCE/ ORAL; ONE USE
     Route: 048
  2. CELEBREX [Concomitant]
  3. ALLOPURINOL [Concomitant]
  4. RANITIDINE [Concomitant]

REACTIONS (4)
  - DYSPNOEA [None]
  - HYPERSENSITIVITY [None]
  - PARAESTHESIA ORAL [None]
  - SWOLLEN TONGUE [None]
